FAERS Safety Report 11099385 (Version 2)
Quarter: 2015Q2

REPORT INFORMATION
  Report Type: Report from Study
  Country: CA (occurrence: CA)
  Receive Date: 20150508
  Receipt Date: 20150522
  Transmission Date: 20150821
  Serious: Yes (Hospitalization)
  Sender: FDA-Public Use
  Company Number: CA-BIOGENIDEC-2015BI058988

PATIENT
  Age: 52 Year
  Sex: Female

DRUGS (1)
  1. TYSABRI [Suspect]
     Active Substance: NATALIZUMAB
     Indication: RELAPSING-REMITTING MULTIPLE SCLEROSIS
     Route: 042
     Dates: start: 20131217

REACTIONS (9)
  - Diverticular perforation [Not Recovered/Not Resolved]
  - Chills [Unknown]
  - Vomiting [Recovered/Resolved]
  - Pyrexia [Not Recovered/Not Resolved]
  - Erythema [Unknown]
  - Nausea [Unknown]
  - Fatigue [Unknown]
  - Abdominal pain [Not Recovered/Not Resolved]
  - Hot flush [Unknown]

NARRATIVE: CASE EVENT DATE: 20150422
